FAERS Safety Report 4720636-8 (Version None)
Quarter: 2005Q3

REPORT INFORMATION
  Report Type: 
  Country: None (occurrence: None)
  Receive Date: 20050719
  Receipt Date: 20050412
  Transmission Date: 20060218
  Serious: Yes (Other)
  Sender: FDA-Public Use
  Company Number: 2005059058

PATIENT
  Age: 62 Year
  Sex: Female
  Weight: 61.6892 kg

DRUGS (7)
  1. CELEBREX [Suspect]
     Indication: ARTHRALGIA
     Dosage: (1 IN 1 D), ORAL
     Route: 048
  2. CELEBREX [Suspect]
     Indication: MYALGIA
     Dosage: (1 IN 1 D), ORAL
     Route: 048
  3. BEXTRA [Suspect]
     Indication: PAIN
     Dosage: 20 MG (20 MG, 1 IN 1 D), ORAL
     Route: 048
     Dates: start: 20020101, end: 20030101
  4. ROFECOXIB [Suspect]
     Indication: ILL-DEFINED DISORDER
  5. ESTROGENS CONJUGATED [Concomitant]
  6. ZOLPIDEM TARTRATE [Concomitant]
  7. THYROID TAB [Concomitant]

REACTIONS (15)
  - DERMATITIS [None]
  - DRUG EFFECT DECREASED [None]
  - DRUG INEFFECTIVE [None]
  - DRY EYE [None]
  - EYE PRURITUS [None]
  - FORMICATION [None]
  - GASTRIC HAEMORRHAGE [None]
  - GENITAL PRURITUS FEMALE [None]
  - HERPES ZOSTER [None]
  - HYPERSENSITIVITY [None]
  - INSOMNIA [None]
  - NERVOUSNESS [None]
  - SKIN DISORDER [None]
  - SKIN REACTION [None]
  - STOMACH DISCOMFORT [None]
